FAERS Safety Report 25472499 (Version 1)
Quarter: 2025Q2

REPORT INFORMATION
  Report Type: Spontaneous
  Country: US (occurrence: US)
  Receive Date: 20250624
  Receipt Date: 20250624
  Transmission Date: 20250716
  Serious: Yes (Other)
  Sender: CHEPLAPHARM
  Company Number: US-CHEPLA-2025007760

PATIENT
  Sex: Male

DRUGS (2)
  1. ETOPOSIDE PHOSPHATE [Suspect]
     Active Substance: ETOPOSIDE PHOSPHATE
  2. CARBOPLATIN [Suspect]
     Active Substance: CARBOPLATIN

REACTIONS (3)
  - Metastases to pelvis [Unknown]
  - Bone pain [Unknown]
  - Disease progression [Unknown]
